FAERS Safety Report 25627243 (Version 2)
Quarter: 2025Q4

REPORT INFORMATION
  Report Type: Report from Study
  Country: US (occurrence: US)
  Receive Date: 20250731
  Receipt Date: 20251003
  Transmission Date: 20260118
  Serious: Yes (Hospitalization)
  Sender: ABBVIE
  Company Number: US-ABBVIE-6393315

PATIENT
  Sex: Female

DRUGS (2)
  1. VENCLEXTA [Suspect]
     Active Substance: VENETOCLAX
     Indication: Pyrexia
     Dosage: MISSED DOSE, LAST ADMIN DATE 2025
     Route: 048
     Dates: start: 202507
  2. VENCLEXTA [Suspect]
     Active Substance: VENETOCLAX
     Indication: Pyrexia
     Dosage: FIRST ADMIN DATE 2025
     Route: 048

REACTIONS (3)
  - Atrial fibrillation [Not Recovered/Not Resolved]
  - Cardiac disorder [Unknown]
  - Asthenia [Unknown]
